FAERS Safety Report 9565897 (Version 1)
Quarter: 2013Q3

REPORT INFORMATION
  Report Type: Report from Study
  Country: US (occurrence: US)
  Receive Date: 20130930
  Receipt Date: 20130930
  Transmission Date: 20140515
  Serious: Yes (Other)
  Sender: FDA-Public Use
  Company Number: PHEH2013US020305

PATIENT
  Sex: Female

DRUGS (1)
  1. MYFORTIC [Suspect]
     Indication: LIVER TRANSPLANT
     Dosage: UNK UKN, BID
     Route: 048
     Dates: start: 20121120

REACTIONS (2)
  - Chronic hepatic failure [Unknown]
  - Hepatic enzyme increased [Unknown]
